FAERS Safety Report 13436658 (Version 1)
Quarter: 2017Q2

REPORT INFORMATION
  Report Type: Spontaneous
  Country: CA (occurrence: CA)
  Receive Date: 20170413
  Receipt Date: 20170413
  Transmission Date: 20170830
  Serious: Yes (Hospitalization)
  Sender: FDA-Public Use
  Company Number: CA-ACTELION-A-US2017-150474

PATIENT
  Age: 70 Year
  Sex: Female

DRUGS (12)
  1. OPSUMIT [Concomitant]
     Active Substance: MACITENTAN
     Indication: PULMONARY ARTERIAL HYPERTENSION
     Route: 048
  2. UPTRAVI [Suspect]
     Active Substance: SELEXIPAG
     Indication: PULMONARY ARTERIAL HYPERTENSION
     Dosage: 800 MCG, UNK
     Route: 048
     Dates: start: 20170123
  3. SILDENAFIL. [Concomitant]
     Active Substance: SILDENAFIL
  4. UPTRAVI [Suspect]
     Active Substance: SELEXIPAG
     Dosage: UNK
     Route: 048
     Dates: start: 20161221
  5. DOMPERIDONE [Concomitant]
     Active Substance: DOMPERIDONE
  6. ATORVASTATIN [Concomitant]
     Active Substance: ATORVASTATIN
  7. UPTRAVI [Suspect]
     Active Substance: SELEXIPAG
     Dosage: 1000 MCG, BID
     Route: 048
     Dates: start: 20170402
  8. MICARDIS [Concomitant]
     Active Substance: TELMISARTAN
  9. HYDROCHLOORTHIAZIDE [Concomitant]
     Active Substance: HYDROCHLOROTHIAZIDE
  10. ADALAT [Concomitant]
     Active Substance: NIFEDIPINE
  11. UPTRAVI [Suspect]
     Active Substance: SELEXIPAG
     Dosage: 1200 MCG, BID
     Route: 048
     Dates: end: 20170402
  12. PREVACID [Concomitant]
     Active Substance: LANSOPRAZOLE

REACTIONS (9)
  - Left ventricular failure [Unknown]
  - Pleural effusion [Unknown]
  - Decreased appetite [Unknown]
  - Ageusia [Unknown]
  - Right ventricular failure [Unknown]
  - Diarrhoea [Unknown]
  - Pulmonary veno-occlusive disease [Unknown]
  - Dyspnoea [Unknown]
  - Condition aggravated [Unknown]
